FAERS Safety Report 19958107 (Version 2)
Quarter: 2022Q1

REPORT INFORMATION
  Report Type: Spontaneous
  Country: DE (occurrence: DE)
  Receive Date: 20211015
  Receipt Date: 20220328
  Transmission Date: 20220423
  Serious: Yes (Other)
  Sender: FDA-Public Use
  Company Number: DE-BAYER-2021A229517

PATIENT
  Age: 57 Year
  Sex: Female

DRUGS (2)
  1. BETAFERON [Suspect]
     Active Substance: INTERFERON BETA-1B
     Indication: Multiple sclerosis
     Dosage: 150 ?G/ML
     Dates: start: 2004, end: 2021
  2. BETAFERON [Suspect]
     Active Substance: INTERFERON BETA-1B
     Indication: Multiple sclerosis
     Dosage: 150 ?G/ML
     Dates: start: 202201

REACTIONS (1)
  - Triple negative breast cancer [None]

NARRATIVE: CASE EVENT DATE: 20210101
